FAERS Safety Report 10038999 (Version 5)
Quarter: 2014Q2

REPORT INFORMATION
  Report Type: Spontaneous
  Country: GB (occurrence: GB)
  Receive Date: 20140326
  Receipt Date: 20140525
  Transmission Date: 20141212
  Serious: Yes (Death, Other)
  Sender: FDA-Public Use
  Company Number: GB-BRISTOL-MYERS SQUIBB COMPANY-20546982

PATIENT
  Sex: Female

DRUGS (8)
  1. ELIQUIS [Suspect]
     Indication: HIP ARTHROPLASTY
     Dosage: 1DF=FILM-COATED TABLET
  2. ELIQUIS [Interacting]
     Indication: KNEE ARTHROPLASTY
     Dosage: 1DF=FILM-COATED TABLET
  3. METFORMIN HCL TABS [Interacting]
     Indication: DIABETES MELLITUS
     Dosage: FILM-COATED TABLET
  4. IBUPROFEN [Suspect]
  5. RAMIPRIL [Suspect]
  6. GENTAMICIN [Suspect]
     Indication: INFECTION
  7. FLUCLOXACILLIN SODIUM [Suspect]
  8. NAPROXEN [Concomitant]

REACTIONS (3)
  - Renal failure [Fatal]
  - Drug interaction [Unknown]
  - Infection [Unknown]
